FAERS Safety Report 20782534 (Version 1)
Quarter: 2022Q2

REPORT INFORMATION
  Report Type: Spontaneous
  Country: US (occurrence: US)
  Receive Date: 20220504
  Receipt Date: 20220504
  Transmission Date: 20220721
  Serious: No
  Sender: FDA-Public Use
  Company Number: US-VERTEX PHARMACEUTICALS-2022-006404

PATIENT
  Sex: Female

DRUGS (13)
  1. ORKAMBI [Suspect]
     Active Substance: IVACAFTOR\LUMACAFTOR
     Indication: Cystic fibrosis
     Dosage: 150 MG/ 188 MG GRANULES
     Route: 048
     Dates: end: 202012
  2. ORKAMBI [Suspect]
     Active Substance: IVACAFTOR\LUMACAFTOR
     Dosage: 150 MG/ 188 MG GRANULES
     Route: 048
     Dates: start: 202101
  3. CAYSTON [Concomitant]
     Active Substance: AZTREONAM
  4. FLAGYL [Concomitant]
     Active Substance: METRONIDAZOLE\METRONIDAZOLE HYDROCHLORIDE
     Dosage: CHRONIC TREATMENT-2 WEEKS ON/2 WEEKS OFF
  5. LENTE INSULIN NOS [Concomitant]
     Active Substance: INSULIN NOS
  6. VIOKASE [Concomitant]
     Active Substance: PANCRELIPASE
  7. CREON [Concomitant]
     Active Substance: PANCRELIPASE AMYLASE\PANCRELIPASE LIPASE\PANCRELIPASE PROTEASE
  8. PULMOZYME [Concomitant]
     Active Substance: DORNASE ALFA
  9. SODIUM CHLORIDE [Concomitant]
     Active Substance: SODIUM CHLORIDE
  10. ALBUTEROL [Concomitant]
     Active Substance: ALBUTEROL
  11. ZITHROMAX [Concomitant]
     Active Substance: AZITHROMYCIN DIHYDRATE
  12. UNSPECIFIED INGREDIENT [Concomitant]
     Active Substance: UNSPECIFIED INGREDIENT
  13. OXYGEN [Concomitant]
     Active Substance: OXYGEN
     Dosage: AT HOME WHEN NEEDED (GOAL TO KEEP SATS }90)

REACTIONS (2)
  - Liver function test increased [Unknown]
  - Pulmonary function test decreased [Not Recovered/Not Resolved]
